FAERS Safety Report 9588079 (Version 1)
Quarter: 2013Q4

REPORT INFORMATION
  Report Type: Spontaneous
  Country: US (occurrence: US)
  Receive Date: 20131003
  Receipt Date: 20131003
  Transmission Date: 20140711
  Serious: No
  Sender: FDA-Public Use
  Company Number: US-AMGEN-USASP2012068548

PATIENT
  Age: 67 Year
  Sex: Female

DRUGS (9)
  1. ENBREL [Suspect]
     Indication: PRODUCT USED FOR UNKNOWN INDICATION
     Dosage: 50 MG, QWK
     Route: 058
  2. ENBREL [Suspect]
  3. METHOTREXATE [Concomitant]
     Dosage: 2.5 MG, UNK
  4. CALTRATE                           /00944201/ [Concomitant]
     Dosage: 600 UNK, UNK
  5. VITAMIN D                          /00107901/ [Concomitant]
     Dosage: 400 UNIT, UNK
  6. FOLIC ACID [Concomitant]
     Dosage: 1 MG, UNK
  7. CYMBALTA [Concomitant]
     Dosage: 20 MG, UNK
  8. ALENDRONATE [Concomitant]
     Dosage: 5 MG, UNK
  9. MUCINEX [Concomitant]
     Dosage: 600 MG ER, UNK

REACTIONS (1)
  - Upper respiratory tract infection [Unknown]
